FAERS Safety Report 9379688 (Version 1)
Quarter: 2013Q2

REPORT INFORMATION
  Report Type: Spontaneous
  Country: DE (occurrence: None)
  Receive Date: 20130627
  Receipt Date: 20130627
  Transmission Date: 20140414
  Serious: Yes (Other)
  Sender: FDA-Public Use
  Company Number: DE-20130095

PATIENT
  Age: 36 Year
  Sex: Female

DRUGS (1)
  1. DOTAREM [Suspect]
     Indication: NUCLEAR MAGNETIC RESONANCE IMAGING
     Route: 042
     Dates: start: 20130611, end: 20130611

REACTIONS (4)
  - Erythema [None]
  - Nasal congestion [None]
  - Burning sensation [None]
  - Sensation of foreign body [None]
